FAERS Safety Report 10044189 (Version 4)
Quarter: 2014Q4

REPORT INFORMATION
  Report Type: Spontaneous
  Country: JP (occurrence: JP)
  Receive Date: 20140328
  Receipt Date: 20141010
  Transmission Date: 20150528
  Serious: Yes (Other)
  Sender: FDA-Public Use
  Company Number: JP-ELI_LILLY_AND_COMPANY-JP201403002532

PATIENT
  Age: 26 Year
  Sex: Male
  Weight: 56 kg

DRUGS (15)
  1. CYMBALTA [Suspect]
     Active Substance: DULOXETINE HYDROCHLORIDE
     Indication: BIPOLAR I DISORDER
     Dosage: 20 MG, EACH MORNING
     Route: 048
     Dates: start: 20140203, end: 20140224
  2. BENZALIN                           /00036201/ [Concomitant]
     Active Substance: NITRAZEPAM
     Indication: INSOMNIA
     Dosage: 10 MG, EACH EVENING
     Route: 048
     Dates: start: 20140116, end: 20140202
  3. FLUNITRAZEPAM [Concomitant]
     Active Substance: FLUNITRAZEPAM
     Dosage: 2 MG, QD
     Route: 048
     Dates: start: 20140204
  4. GOODMIN [Concomitant]
     Active Substance: BROTIZOLAM
     Dosage: 0.25 MG, QD
     Route: 048
     Dates: start: 20140204
  5. FLUNITRAZEPAM [Concomitant]
     Active Substance: FLUNITRAZEPAM
     Dosage: 4 MG, QD
     Route: 048
     Dates: start: 20140203, end: 20140203
  6. BENZALIN                           /00036201/ [Concomitant]
     Active Substance: NITRAZEPAM
     Dosage: 10 MG, QD
     Route: 048
     Dates: start: 20140204
  7. MAGMITT [Concomitant]
     Active Substance: MAGNESIUM OXIDE
     Dosage: 500 MG, TID
     Route: 048
     Dates: start: 20140130, end: 20140305
  8. TASMOLIN                           /00079501/ [Concomitant]
     Active Substance: BIPERIDEN
     Indication: EXTRAPYRAMIDAL DISORDER
     Dosage: 1 MG, TID
     Route: 048
     Dates: start: 20140131, end: 20140202
  9. TASMOLIN                           /00079501/ [Concomitant]
     Active Substance: BIPERIDEN
     Dosage: 2 MG, TID
     Route: 048
     Dates: start: 20140203, end: 20140203
  10. TASMOLIN                           /00079501/ [Concomitant]
     Active Substance: BIPERIDEN
     Dosage: 1 MG, TID
     Route: 048
     Dates: start: 20140204
  11. FLUNITRAZEPAM [Concomitant]
     Active Substance: FLUNITRAZEPAM
     Indication: INSOMNIA
     Dosage: 2 MG, EACH EVENING
     Route: 048
     Dates: start: 20140121, end: 20140202
  12. BENZALIN                           /00036201/ [Concomitant]
     Active Substance: NITRAZEPAM
     Dosage: 20 MG, EACH EVENING
     Route: 048
     Dates: start: 20140203, end: 20140203
  13. GOODMIN [Concomitant]
     Active Substance: BROTIZOLAM
     Indication: INSOMNIA
     Dosage: 0.25 MG, EACH EVENING
     Route: 048
     Dates: start: 20140114, end: 20140202
  14. GOODMIN [Concomitant]
     Active Substance: BROTIZOLAM
     Dosage: 0.5 MG, EACH EVENING
     Route: 048
     Dates: start: 20140203, end: 20140203
  15. U PAN [Concomitant]
     Active Substance: LORAZEPAM
     Indication: ANXIETY DISORDER
     Dosage: 1 MG, TID
     Route: 048
     Dates: start: 20140116

REACTIONS (3)
  - Blood creatine phosphokinase increased [Recovered/Resolved]
  - Myoglobinuria [Unknown]
  - Rhabdomyolysis [Recovered/Resolved]

NARRATIVE: CASE EVENT DATE: 201402
